FAERS Safety Report 6059167-4 (Version None)
Quarter: 2009Q1

REPORT INFORMATION
  Report Type: 
  Country: None (occurrence: None)
  Receive Date: 20090127
  Receipt Date: 20090127
  Transmission Date: 20090719
  Serious: Yes (Life-Threatening, Hospitalization)
  Sender: FDA-Public Use
  Company Number: None

PATIENT
  Age: 63 Year
  Sex: Female

DRUGS (17)
  1. REMICADE [Suspect]
     Indication: RHEUMATOID ARTHRITIS
     Dosage: IV DRIP  (DURATION: X 5 DOSES TOTAL)
     Route: 041
  2. METHOTREXATE [Concomitant]
  3. TOPAMAX [Concomitant]
  4. TEMAZEPAM [Concomitant]
  5. LISINOPRIL [Concomitant]
  6. CYMBALTA [Concomitant]
  7. VITAMIN D [Concomitant]
  8. FOLIC ACID [Concomitant]
  9. SIMVASTATIN [Concomitant]
  10. PRIMIDONE [Concomitant]
  11. ASACOL [Concomitant]
  12. METFORMIN HCL [Concomitant]
  13. SYNTHROID [Concomitant]
  14. LYRICA [Concomitant]
  15. CARISOPRODOL [Concomitant]
  16. ACIPHEX [Concomitant]
  17. MELOXICAM [Concomitant]

REACTIONS (5)
  - ANAPHYLACTIC REACTION [None]
  - FLUID OVERLOAD [None]
  - INFUSION RELATED REACTION [None]
  - NO REACTION ON PREVIOUS EXPOSURE TO DRUG [None]
  - SYNCOPE [None]
